FAERS Safety Report 8973432 (Version 1)
Quarter: 2012Q4

REPORT INFORMATION
  Report Type: 
  Country: US (occurrence: US)
  Receive Date: 20121218
  Receipt Date: 20121218
  Transmission Date: 20130627
  Serious: No
  Sender: FDA-Public Use
  Company Number: US-BRISTOL-MYERS SQUIBB COMPANY-16784753

PATIENT
  Age: 3 None
  Sex: Male
  Weight: 81.63 kg

DRUGS (3)
  1. ABILIFY [Suspect]
     Indication: OBSESSIVE-COMPULSIVE DISORDER
  2. LUVOX [Suspect]
  3. CLONAZEPAM [Suspect]

REACTIONS (2)
  - Hypomania [Unknown]
  - Insomnia [Unknown]
